FAERS Safety Report 4552638-9 (Version None)
Quarter: 2005Q1

REPORT INFORMATION
  Report Type: 
  Country: None (occurrence: None)
  Receive Date: 20050114
  Receipt Date: 20050104
  Transmission Date: 20050727
  Serious: Yes (Other)
  Sender: FDA-Public Use
  Company Number: US-JNJFOC-20041003972

PATIENT
  Sex: Female
  Weight: 62.8 kg

DRUGS (9)
  1. REMICADE [Suspect]
     Indication: CROHN'S DISEASE
     Dosage: STARTED WITH ONCE EVERY 3 WEEKS AND PROCEEDED TO ONCE EVERY 8 WEEKS.
     Route: 042
  2. IMURAN [Concomitant]
     Indication: CROHN'S DISEASE
  3. FLAGYL [Concomitant]
     Indication: CROHN'S DISEASE
  4. CALTRATE [Concomitant]
     Dosage: 1 PO BID
  5. AMBIEN [Concomitant]
     Dosage: PM
  6. VICODIN [Concomitant]
  7. VICODIN [Concomitant]
     Dosage: PM
  8. CORTENEMA [Concomitant]
  9. CIPRO [Concomitant]
     Indication: CROHN'S DISEASE

REACTIONS (1)
  - HEPATIC NEOPLASM MALIGNANT [None]
